FAERS Safety Report 11595421 (Version 1)
Quarter: 2015Q4

REPORT INFORMATION
  Report Type: Report from Study
  Country: CN (occurrence: CN)
  Receive Date: 20151006
  Receipt Date: 20151006
  Transmission Date: 20160304
  Serious: Yes (Death, Other)
  Sender: FDA-Public Use
  Company Number: CN-ROCHE-1642003

PATIENT
  Age: 14 Year
  Sex: Female

DRUGS (4)
  1. FK506 [Suspect]
     Active Substance: TACROLIMUS
     Indication: IMMUNOSUPPRESSION
     Dosage: FROM DAY 4 POST-TRANSPLANT
     Route: 065
  2. MYCOPHENOLATE MOFETIL. [Suspect]
     Active Substance: MYCOPHENOLATE MOFETIL
     Indication: IMMUNOSUPPRESSION
     Dosage: FROM DAY 1 AT THE DOSE OF 1.5-2.0 G/DAY
     Route: 048
  3. CYCLOSPORINE A [Suspect]
     Active Substance: CYCLOSPORINE
     Indication: IMMUNOSUPPRESSION
     Dosage: FROM DAY 4 POST-TRANSPLANT AT DOSE OF 4.5-5.0 MG/KG/DAY
     Route: 065
  4. PREDNISONE. [Suspect]
     Active Substance: PREDNISONE
     Indication: IMMUNOSUPPRESSION
     Dosage: 15-20 MG/DAY
     Route: 065

REACTIONS (2)
  - Pneumonia [Unknown]
  - Cardiac failure [Fatal]
